FAERS Safety Report 17388170 (Version 1)
Quarter: 2020Q1

REPORT INFORMATION
  Report Type: Spontaneous
  Country: US (occurrence: US)
  Receive Date: 20200207
  Receipt Date: 20200207
  Transmission Date: 20200409
  Serious: No
  Sender: FDA-Public Use
  Company Number: US-GLAXOSMITHKLINE-US2020016776

PATIENT
  Sex: Female

DRUGS (4)
  1. TYLENOL [Concomitant]
     Active Substance: ACETAMINOPHEN
     Indication: ARTHRALGIA
     Dosage: UNK
     Route: 065
  2. MOTRIN [Concomitant]
     Active Substance: IBUPROFEN
     Indication: ARTHRALGIA
     Dosage: UNK
     Route: 065
  3. ALEVE [Concomitant]
     Active Substance: NAPROXEN SODIUM
     Indication: ARTHRALGIA
     Dosage: UNK
     Route: 065
  4. BENLYSTA [Suspect]
     Active Substance: BELIMUMAB
     Indication: PRODUCT USED FOR UNKNOWN INDICATION
     Dosage: 200 MG, WE
     Route: 065
     Dates: start: 20191227

REACTIONS (12)
  - Vaginal haemorrhage [Unknown]
  - Nausea [Unknown]
  - Restlessness [Unknown]
  - Condition aggravated [Unknown]
  - Butterfly rash [Unknown]
  - Stomatitis [Unknown]
  - Ocular discomfort [Unknown]
  - Pruritus [Unknown]
  - Arthralgia [Unknown]
  - Ear pain [Unknown]
  - Mood swings [Unknown]
  - Product dose omission [Unknown]
